FAERS Safety Report 7269635-5 (Version None)
Quarter: 2011Q1

REPORT INFORMATION
  Report Type: 
  Country: None (occurrence: None)
  Receive Date: 20110125
  Receipt Date: 20110107
  Transmission Date: 20110831
  Serious: Yes (Other)
  Sender: FDA-Public Use
  Company Number: MSTR-NO-1012S-0387

PATIENT
  Age: 47 Year
  Sex: Male

DRUGS (2)
  1. METASTRON [Suspect]
     Indication: METASTATIC PAIN
     Dosage: 141 MBQ, SINGLE DOSE, I.V.
     Route: 042
     Dates: start: 20101125, end: 20101125
  2. DICLOFENAC SODIUM [Concomitant]

REACTIONS (3)
  - DRUG ERUPTION [None]
  - MALAISE [None]
  - OEDEMA PERIPHERAL [None]
